FAERS Safety Report 25347190 (Version 1)
Quarter: 2025Q2

REPORT INFORMATION
  Report Type: Spontaneous
  Country: IN (occurrence: IN)
  Receive Date: 20250522
  Receipt Date: 20250522
  Transmission Date: 20250716
  Serious: Yes (Hospitalization, Other)
  Sender: LEGACY PHARMACEUTICAL PACKAGING
  Company Number: IN-LEGACY PHARMA INC. SEZC-LGP202505-000155

PATIENT
  Age: 35 Year
  Sex: Male

DRUGS (8)
  1. ATROPINE SULFATE\DIFENOXIN HYDROCHLORIDE [Suspect]
     Active Substance: ATROPINE SULFATE\DIFENOXIN HYDROCHLORIDE
     Indication: Chemical poisoning
     Dosage: 8 MILLILITER, QH
     Route: 065
  2. ATROPINE SULFATE\DIFENOXIN HYDROCHLORIDE [Suspect]
     Active Substance: ATROPINE SULFATE\DIFENOXIN HYDROCHLORIDE
     Dosage: 1 MILLILITER, QH
     Route: 065
  3. ATROPINE SULFATE\DIFENOXIN HYDROCHLORIDE [Suspect]
     Active Substance: ATROPINE SULFATE\DIFENOXIN HYDROCHLORIDE
     Dosage: 0.5 MILLILITER, QH
     Route: 065
  4. PRALIDOXIME [Concomitant]
     Active Substance: PRALIDOXIME
     Indication: Chemical poisoning
     Route: 042
  5. SUCRALFATE [Concomitant]
     Active Substance: SUCRALFATE
     Indication: Chemical poisoning
  6. PIPERACILLIN SODIUM\TAZOBACTAM SODIUM [Concomitant]
     Active Substance: PIPERACILLIN SODIUM\TAZOBACTAM SODIUM
     Indication: Chemical poisoning
     Route: 042
  7. PANTOPRAZOLE [Concomitant]
     Active Substance: PANTOPRAZOLE
     Indication: Chemical poisoning
     Route: 042
  8. HALOPERIDOL [Suspect]
     Active Substance: HALOPERIDOL
     Indication: Psychotic disorder
     Route: 042

REACTIONS (5)
  - Substance-induced psychotic disorder [Recovered/Resolved]
  - Hallucinations, mixed [Recovered/Resolved]
  - Agitation [Recovered/Resolved]
  - Anxiety [Recovered/Resolved]
  - Product use in unapproved indication [Unknown]
